FAERS Safety Report 7384062 (Version 6)
Quarter: 2020Q2

REPORT INFORMATION
  Report Type: Spontaneous
  Country: FR (occurrence: FR)
  Receive Date: 20100511
  Receipt Date: 20200604
  Transmission Date: 20200714
  Serious: Yes (Life-Threatening, Hospitalization)
  Sender: FDA-Public Use
  Company Number: FR-PFIZER INC-2010055174

PATIENT
  Age: 24 Year
  Sex: Male

DRUGS (28)
  1. ATRACURIUM BESILATE [Suspect]
     Active Substance: ATRACURIUM BESYLATE
     Indication: SEDATION
     Dosage: 50MG, PER HOUR
     Route: 042
     Dates: start: 20100201, end: 20100202
  2. FLAGYL [Suspect]
     Active Substance: METRONIDAZOLE\METRONIDAZOLE HYDROCHLORIDE
     Dosage: UNK
     Route: 042
     Dates: start: 20100125, end: 20100219
  3. MIDAZOLAM MYLAN [Suspect]
     Active Substance: MIDAZOLAM HYDROCHLORIDE
     Indication: SEDATION
     Dosage: 4 MG PER HOUR THEN 10MG PER HOUR
     Route: 042
     Dates: start: 20100112
  4. PANCURONIUM BROMIDE. [Suspect]
     Active Substance: PANCURONIUM BROMIDE
     Indication: SEDATION
     Dosage: UNK
     Route: 042
     Dates: start: 20100201, end: 20100202
  5. METHYLPREDNISOLONE. [Concomitant]
     Active Substance: METHYLPREDNISOLONE
     Dosage: 60MG THEN 40MG THEN 30MG
     Dates: start: 20100203
  6. PROPOFOL. [Suspect]
     Active Substance: PROPOFOL
     Dosage: 100 MG, PER HOUR
     Route: 042
     Dates: start: 20100129, end: 20100202
  7. TERBUTALINE SULFATE. [Concomitant]
     Active Substance: TERBUTALINE SULFATE
     Dosage: UNK
  8. PROPOFOL. [Suspect]
     Active Substance: PROPOFOL
     Indication: SEDATION
     Dosage: 100 MG, PER HOUR
     Route: 042
     Dates: start: 20100124, end: 20100125
  9. ATRACURIUM BESILATE [Suspect]
     Active Substance: ATRACURIUM BESYLATE
     Indication: STATUS ASTHMATICUS
     Dosage: 80MG TO 100MG, PER HOUR
     Route: 042
     Dates: start: 20100203, end: 20100206
  10. ATRACURIUM BESILATE [Suspect]
     Active Substance: ATRACURIUM BESYLATE
     Dosage: 50 MG, PER HOUR
     Route: 042
     Dates: start: 20100207, end: 20100207
  11. BRICANYL - SLOW RELEASE [Concomitant]
     Dosage: 1 MG TO 2 MG PER HOUR
     Route: 042
  12. HUMALOG [Concomitant]
     Active Substance: INSULIN LISPRO
     Dosage: UNK
  13. HEPARIN CALCIUM [Concomitant]
     Active Substance: HEPARIN CALCIUM
     Dosage: UNK
  14. VFEND [Suspect]
     Active Substance: VORICONAZOLE
     Indication: ASPERGILLUS INFECTION
     Dosage: 320 MG, 2X/DAY
     Route: 042
     Dates: start: 20100119, end: 20100202
  15. NIMBEX [Suspect]
     Active Substance: CISATRACURIUM BESYLATE
     Indication: STATUS ASTHMATICUS
  16. METHYLPREDNISOLONE. [Concomitant]
     Active Substance: METHYLPREDNISOLONE
     Indication: SEDATION
     Dosage: 70 MG PER DAY
     Route: 042
     Dates: start: 20100125, end: 20100202
  17. LOVENOX [Concomitant]
     Active Substance: ENOXAPARIN SODIUM
     Dosage: 40 IU
     Dates: end: 20100203
  18. PARENTERAL [Concomitant]
     Dosage: UNK
     Dates: start: 20100123, end: 20100208
  19. PROPOFOL. [Suspect]
     Active Substance: PROPOFOL
     Dosage: 150 MG PER HOUR
     Route: 042
     Dates: start: 20100128, end: 20100128
  20. SUFENTANIL [Suspect]
     Active Substance: SUFENTANIL
     Indication: SEDATION
     Dosage: 30 UG, PER HOUR
     Route: 042
     Dates: start: 20100112
  21. SUFENTANIL [Suspect]
     Active Substance: SUFENTANIL
     Dosage: 60 UG, PER HOUR
     Route: 042
     Dates: start: 20100124, end: 20100124
  22. PANCURONIUM BROMIDE. [Suspect]
     Active Substance: PANCURONIUM BROMIDE
     Indication: STATUS ASTHMATICUS
  23. ROCEPHINE [Suspect]
     Active Substance: CEFTRIAXONE SODIUM
     Dosage: 1 G, DAILY
     Route: 042
     Dates: start: 20100119, end: 20100125
  24. SUFENTANIL [Suspect]
     Active Substance: SUFENTANIL
     Dosage: 50 UG, PER HOUR
     Route: 042
  25. NIMBEX [Suspect]
     Active Substance: CISATRACURIUM BESYLATE
     Indication: SEDATION
     Dosage: 12 MG TO 30 MG, PER  HOUR
     Route: 042
     Dates: start: 20100119, end: 20100201
  26. ROCEPHINE [Suspect]
     Active Substance: CEFTRIAXONE SODIUM
     Dosage: UNK
     Route: 042
     Dates: end: 20100227
  27. KETAMINE [Concomitant]
     Active Substance: KETAMINE
     Dosage: 15 MG, PER HOUR
     Dates: start: 20100202, end: 20100202
  28. KETAMINE [Concomitant]
     Active Substance: KETAMINE
     Dosage: 15 MG, PER HOUR
     Dates: start: 20100207, end: 20100207

REACTIONS (4)
  - Propofol infusion syndrome [Recovered/Resolved]
  - Acute kidney injury [Recovered/Resolved]
  - Rhabdomyolysis [Recovered/Resolved]
  - Oliguria [Not Recovered/Not Resolved]

NARRATIVE: CASE EVENT DATE: 20100202
